FAERS Safety Report 15611763 (Version 2)
Quarter: 2019Q1

REPORT INFORMATION
  Report Type: Spontaneous
  Country: SE (occurrence: SE)
  Receive Date: 20181113
  Receipt Date: 20190325
  Transmission Date: 20190417
  Serious: Yes (Hospitalization)
  Sender: FDA-Public Use
  Company Number: SE-ACCORD-091879

PATIENT
  Age: 47 Year
  Sex: Male

DRUGS (10)
  1. MERONEM [Suspect]
     Active Substance: MEROPENEM
     Indication: PRODUCT USED FOR UNKNOWN INDICATION
     Dates: start: 201005, end: 20100525
  2. DALACIN [Concomitant]
     Active Substance: CLINDAMYCIN
     Dates: start: 201005
  3. METHOTREXATE. [Suspect]
     Active Substance: METHOTREXATE
     Indication: PRODUCT USED FOR UNKNOWN INDICATION
     Dates: end: 20100429
  4. OXYCODONE [Concomitant]
     Active Substance: OXYCODONE
     Indication: PAIN
  5. CLAFORAN [Suspect]
     Active Substance: CEFOTAXIME SODIUM
     Indication: INFECTION
     Dates: start: 20100429, end: 20100501
  6. FELODIPINE. [Concomitant]
     Active Substance: FELODIPINE
  7. ENALAPRIL [Concomitant]
     Active Substance: ENALAPRIL
  8. DALACIN C [Suspect]
     Active Substance: CLINDAMYCIN PHOSPHATE
     Indication: PRODUCT USED FOR UNKNOWN INDICATION
     Dates: start: 20100429, end: 20100501
  9. METRONIDAZOL ACTAVIS [Suspect]
     Active Substance: METRONIDAZOLE
     Indication: PRODUCT USED FOR UNKNOWN INDICATION
     Dates: start: 20100522, end: 20100525
  10. OXYNORM [Concomitant]
     Active Substance: OXYCODONE HYDROCHLORIDE
     Indication: PAIN

REACTIONS (7)
  - Rash [Not Recovered/Not Resolved]
  - Bacterial infection [Recovered/Resolved]
  - Rash [Recovered/Resolved]
  - Pruritus [Recovered/Resolved]
  - Gamma-glutamyltransferase increased [Recovered/Resolved]
  - Abscess [Recovered/Resolved]
  - Blood alkaline phosphatase increased [Recovered/Resolved]

NARRATIVE: CASE EVENT DATE: 20100525
